FAERS Safety Report 19635728 (Version 1)
Quarter: 2021Q3

REPORT INFORMATION
  Report Type: Spontaneous
  Country: US (occurrence: US)
  Receive Date: 20210730
  Receipt Date: 20210730
  Transmission Date: 20211014
  Serious: Yes (Life-Threatening, Hospitalization)
  Sender: FDA-Public Use
  Company Number: None

PATIENT
  Age: 37 Year
  Sex: Female
  Weight: 100 kg

DRUGS (1)
  1. FULPHILA [Suspect]
     Active Substance: PEGFILGRASTIM-JMDB
     Indication: PROPHYLAXIS
     Route: 058
     Dates: start: 20210724, end: 20210724

REACTIONS (6)
  - Febrile neutropenia [None]
  - Vomiting [None]
  - Brain injury [None]
  - Anaphylactic reaction [None]
  - Cardio-respiratory arrest [None]
  - Pneumonia aspiration [None]

NARRATIVE: CASE EVENT DATE: 20210724
